FAERS Safety Report 6128427-0 (Version None)
Quarter: 2009Q1

REPORT INFORMATION
  Report Type: 
  Country: None (occurrence: None)
  Receive Date: 20090323
  Receipt Date: 20090310
  Transmission Date: 20090719
  Serious: Yes (Hospitalization, Other)
  Sender: FDA-Public Use
  Company Number: FR-ROCHE-619697

PATIENT
  Sex: Male
  Weight: 65 kg

DRUGS (4)
  1. PEG-INTERFERON ALFA 2A (RO 25-8310) [Suspect]
     Dosage: THERAPY TEMPORARILY STOPPED.
     Route: 058
     Dates: start: 20081217, end: 20090225
  2. RIBAVIRIN [Suspect]
     Route: 048
     Dates: start: 20081217, end: 20090213
  3. RIBAVIRIN [Suspect]
     Dosage: THERAPY TEMPORARILY STOPPED.
     Route: 048
     Dates: start: 20090213, end: 20090303
  4. BLINDED TELAPREVIR [Suspect]
     Dosage: THERAPY TEMPORARILY STOPPED.
     Route: 048
     Dates: start: 20081217, end: 20090303

REACTIONS (10)
  - ANAEMIA [None]
  - ANOREXIA [None]
  - ASTHENIA [None]
  - BLOOD THYROID STIMULATING HORMONE INCREASED [None]
  - DEHYDRATION [None]
  - DIARRHOEA [None]
  - PYREXIA [None]
  - RENAL FAILURE [None]
  - VOMITING [None]
  - WEIGHT DECREASED [None]
